FAERS Safety Report 6942354-8 (Version None)
Quarter: 2010Q3

REPORT INFORMATION
  Report Type: 
  Country: None (occurrence: None)
  Receive Date: 20100826
  Receipt Date: 20100823
  Transmission Date: 20110219
  Serious: Yes (Other)
  Sender: FDA-Public Use
  Company Number: US-BRISTOL-MYERS SQUIBB COMPANY-15251374

PATIENT
  Age: 65 Year
  Sex: Male

DRUGS (2)
  1. WARFARIN SODIUM [Suspect]
     Dosage: 1 DF= THREE 1.5GMS FOR 5D A WK ONE 1.5 GRAM OTHER 2 DAYS OF THE WEEK
  2. MAGNESIUM [Concomitant]

REACTIONS (3)
  - DIZZINESS [None]
  - MALAISE [None]
  - MYOCARDIAL INFARCTION [None]
